FAERS Safety Report 6540141-6 (Version None)
Quarter: 2010Q1

REPORT INFORMATION
  Report Type: 
  Country: None (occurrence: None)
  Receive Date: 20100115
  Receipt Date: 20100106
  Transmission Date: 20100710
  Serious: Yes (Life-Threatening)
  Sender: FDA-Public Use
  Company Number: JP-TYCO HEALTHCARE/MALLINCKRODT-T201000011

PATIENT
  Age: 53 Year
  Sex: Male

DRUGS (3)
  1. OPTIRAY 350 [Suspect]
     Indication: COMPUTERISED TOMOGRAM
     Dosage: 100 ML, UNK
     Dates: start: 20070501, end: 20070501
  2. IOMERON-150 [Suspect]
     Indication: ARTERIOGRAM CORONARY
     Dosage: UNK
     Dates: start: 20070501, end: 20070501
  3. HYDROCORTISONE [Suspect]
     Indication: PREMEDICATION
     Dosage: 500 MG
     Route: 042
     Dates: start: 20070501, end: 20070501

REACTIONS (1)
  - ANAPHYLACTIC SHOCK [None]
